FAERS Safety Report 4956001-8 (Version None)
Quarter: 2006Q1

REPORT INFORMATION
  Report Type: 
  Country: None (occurrence: None)
  Receive Date: 20060328
  Receipt Date: 20050823
  Transmission Date: 20060701
  Serious: Yes (Hospitalization)
  Sender: FDA-Public Use
  Company Number: US-MERCK-0508USA03868

PATIENT
  Age: 71 Year
  Sex: Female
  Weight: 90 kg

DRUGS (5)
  1. VIOXX [Suspect]
     Indication: ARTHRITIS
     Route: 048
     Dates: start: 20000801, end: 20040901
  2. VIOXX [Suspect]
     Indication: EXOSTOSIS
     Route: 048
     Dates: start: 20000801, end: 20040901
  3. TYLENOL (CAPLET) [Concomitant]
     Route: 065
  4. LORTAB [Suspect]
     Route: 065
  5. SYNVISC [Concomitant]
     Route: 065
     Dates: start: 20000919, end: 20001003

REACTIONS (24)
  - ACTINIC KERATOSIS [None]
  - ASTHENIA [None]
  - BACK PAIN [None]
  - BLADDER DISORDER [None]
  - BREAST TENDERNESS [None]
  - CARDIAC DISORDER [None]
  - CARDIAC FAILURE CONGESTIVE [None]
  - CEREBROVASCULAR ACCIDENT [None]
  - CHEST PAIN [None]
  - CONTUSION [None]
  - DIZZINESS [None]
  - DYSPNOEA [None]
  - FALL [None]
  - GASTROOESOPHAGEAL REFLUX DISEASE [None]
  - HYPERTENSION [None]
  - JOINT SPRAIN [None]
  - LOSS OF CONSCIOUSNESS [None]
  - MEMORY IMPAIRMENT [None]
  - MENISCUS LESION [None]
  - PATELLOFEMORAL PAIN SYNDROME [None]
  - SKIN LACERATION [None]
  - SPEECH DISORDER [None]
  - TENDONITIS [None]
  - TRANSIENT ISCHAEMIC ATTACK [None]
